FAERS Safety Report 11263975 (Version 1)
Quarter: 2015Q3

REPORT INFORMATION
  Report Type: Spontaneous
  Country: US (occurrence: US)
  Receive Date: 20150713
  Receipt Date: 20150713
  Transmission Date: 20151125
  Serious: No
  Sender: FDA-Public Use
  Company Number: US-JNJFOC-20150613805

PATIENT
  Sex: Male
  Weight: 74.84 kg

DRUGS (1)
  1. PREZISTA [Suspect]
     Active Substance: DARUNAVIR ETHANOLATE
     Indication: HIV INFECTION
     Route: 048

REACTIONS (4)
  - Product size issue [Unknown]
  - Gastrointestinal ulcer [Not Recovered/Not Resolved]
  - Dysphagia [Unknown]
  - Wrong technique in product usage process [Unknown]
